FAERS Safety Report 9687677 (Version 1)
Quarter: 2013Q4

REPORT INFORMATION
  Report Type: Spontaneous
  Country: US (occurrence: US)
  Receive Date: 20131114
  Receipt Date: 20131114
  Transmission Date: 20140711
  Serious: No
  Sender: FDA-Public Use
  Company Number: US-PFIZER INC-2013321076

PATIENT
  Age: 27 Year
  Sex: Male
  Weight: 99.77 kg

DRUGS (1)
  1. VIAGRA [Suspect]
     Indication: ERECTILE DYSFUNCTION
     Dosage: THREE 100 MG TABLETS
     Dates: start: 20131108

REACTIONS (4)
  - Incorrect dose administered [Unknown]
  - Penis disorder [Not Recovered/Not Resolved]
  - Flushing [Not Recovered/Not Resolved]
  - Erection increased [Not Recovered/Not Resolved]
